FAERS Safety Report 9375807 (Version 1)
Quarter: 2013Q2

REPORT INFORMATION
  Report Type: Other
  Country: GB (occurrence: GB)
  Receive Date: 20130628
  Receipt Date: 20130628
  Transmission Date: 20140414
  Serious: Yes (Death)
  Sender: FDA-Public Use
  Company Number: GB-WATSON-2013-11697

PATIENT
  Age: 51 Year
  Sex: Female

DRUGS (7)
  1. AMISULPRIDE (UNKNOWN) [Suspect]
     Indication: SCHIZOPHRENIA
     Dosage: UNK
     Route: 065
     Dates: end: 20121211
  2. CLOMIPRAMINE HYDROCHLORIDE (UNKNOWN) [Suspect]
     Indication: DEPRESSION
     Dosage: UNK
     Route: 065
     Dates: end: 20121211
  3. ZAPONEX [Suspect]
     Indication: SUICIDAL BEHAVIOUR
     Dosage: UNK
     Route: 048
     Dates: start: 20040922, end: 20121211
  4. ZOPICLONE [Concomitant]
     Indication: ANXIETY
     Dosage: UNK
     Route: 065
     Dates: end: 20121211
  5. PROCYCLIDINE [Concomitant]
     Indication: PARKINSONISM
     Dosage: UNK
     Route: 065
     Dates: end: 20121211
  6. GLICLAZIDE [Concomitant]
     Indication: DIABETES MELLITUS
     Dosage: UNK
     Route: 065
     Dates: end: 20121211
  7. RANITIDINE [Suspect]
     Indication: PRODUCT USED FOR UNKNOWN INDICATION
     Dosage: UNK
     Route: 065
     Dates: end: 20121211

REACTIONS (3)
  - Head injury [Fatal]
  - Toxicity to various agents [Fatal]
  - Circulatory collapse [Fatal]
